FAERS Safety Report 5058297-3 (Version None)
Quarter: 2006Q2

REPORT INFORMATION
  Report Type: 
  Country: None (occurrence: None)
  Receive Date: 20060622
  Receipt Date: 20060424
  Transmission Date: 20061013
  Serious: Yes (Hospitalization, Other)
  Sender: FDA-Public Use
  Company Number: US-JNJFOC-20060205014

PATIENT
  Age: 51 Year
  Sex: Female
  Weight: 63.5036 kg

DRUGS (7)
  1. DURAGESIC-100 [Suspect]
     Indication: PAIN
     Dosage: 75 UG/HR, 1 IN 48 HOUR, TRANSDERMAL
     Route: 062
     Dates: start: 20050901
  2. PROZAC [Concomitant]
  3. DYSREL (TRAZODONE HYDROCHLORIDE) [Concomitant]
  4. LAMICTAL [Concomitant]
  5. TRANZINE (CHLORPROMAZINE HYDROCHLORIDE) [Concomitant]
  6. CELEBREX [Concomitant]
  7. GEODON [Concomitant]

REACTIONS (5)
  - BLOOD PRESSURE DECREASED [None]
  - DEPRESSION [None]
  - DRUG ABUSER [None]
  - HEART RATE DECREASED [None]
  - SOMNOLENCE [None]
